FAERS Safety Report 8363723-8 (Version None)
Quarter: 2012Q2

REPORT INFORMATION
  Report Type: 
  Country: None (occurrence: None)
  Receive Date: 20120516
  Receipt Date: 20120511
  Transmission Date: 20120825
  Serious: Yes (Death)
  Sender: FDA-Public Use
  Company Number: PE-ASTRAZENECA-2012SE30649

PATIENT
  Age: 87 Year
  Sex: Female

DRUGS (1)
  1. METOPROLOL SUCCINATE [Suspect]
     Indication: DRESSLER'S SYNDROME
     Route: 048

REACTIONS (1)
  - MYOCARDIAL INFARCTION [None]
